FAERS Safety Report 19283390 (Version 1)
Quarter: 2021Q2

REPORT INFORMATION
  Report Type: Spontaneous
  Country: GB (occurrence: GB)
  Receive Date: 20210521
  Receipt Date: 20210521
  Transmission Date: 20210717
  Serious: Yes (Other)
  Sender: FDA-Public Use
  Company Number: GB-AUROBINDO-AUR-APL-2019-002222

PATIENT
  Age: 34 Year
  Sex: Male

DRUGS (8)
  1. TRENBOLONE ACETATE [Suspect]
     Active Substance: TRENBOLONE ACETATE
     Dosage: 50 MILLIGRAM, DAILY
     Route: 030
  2. TAMOXIFEN TABLET [Suspect]
     Active Substance: TAMOXIFEN
     Indication: PHYSICAL FITNESS TRAINING
     Dosage: UNK
     Route: 048
  3. CLOMIFENE CITRATE [Suspect]
     Active Substance: CLOMIPHENE
     Indication: PHYSICAL FITNESS TRAINING
     Dosage: UNK
     Route: 065
  4. TESTOSTERONE PROPIONATE. [Suspect]
     Active Substance: TESTOSTERONE PROPIONATE
     Dosage: 12 MILLIGRAM, DAILY
     Route: 030
  5. TAMOXIFEN TABLET [Suspect]
     Active Substance: TAMOXIFEN
     Dosage: 2040 MILLIGRAM, DAILY
     Route: 065
  6. TESTOSTERONE PROPIONATE. [Suspect]
     Active Substance: TESTOSTERONE PROPIONATE
     Indication: PHYSICAL FITNESS TRAINING
     Dosage: OVER 12 WEEKS
     Route: 065
  7. TRENBOLONE ACETATE [Suspect]
     Active Substance: TRENBOLONE ACETATE
     Indication: PHYSICAL FITNESS TRAINING
     Dosage: OVER 12 WEEKS,INJECTION
     Route: 065
  8. CLOMIFENE CITRATE [Suspect]
     Active Substance: CLOMIPHENE
     Dosage: 2550 MILLIGRAM, DAILY
     Route: 065

REACTIONS (7)
  - Ischaemic stroke [Unknown]
  - Confusional state [Unknown]
  - Headache [Unknown]
  - Blindness [Unknown]
  - Embolism [Unknown]
  - Drug abuse [Unknown]
  - Ischaemic cerebral infarction [Unknown]
